FAERS Safety Report 6417345-6 (Version None)
Quarter: 2009Q4

REPORT INFORMATION
  Report Type: 
  Country: None (occurrence: None)
  Receive Date: 20091028
  Receipt Date: 20091015
  Transmission Date: 20100525
  Serious: Yes (Other)
  Sender: FDA-Public Use
  Company Number: NO-PFIZER INC-2009284032

PATIENT
  Age: 52 Year

DRUGS (1)
  1. CHAMPIX [Suspect]

REACTIONS (1)
  - HAEMATOCHEZIA [None]
